FAERS Safety Report 7156618-9 (Version None)
Quarter: 2010Q4

REPORT INFORMATION
  Report Type: 
  Country: None (occurrence: None)
  Receive Date: 20101214
  Receipt Date: 20100119
  Transmission Date: 20110411
  Serious: No
  Sender: FDA-Public Use
  Company Number: US-ASTRAZENECA-2009SE18111

PATIENT
  Age: 24308 Day
  Sex: Female
  Weight: 46.3 kg

DRUGS (6)
  1. CRESTOR [Suspect]
     Route: 048
     Dates: start: 20090905
  2. LISINOPRIL [Concomitant]
  3. METFORMIN [Concomitant]
  4. GLUCOSAMINE+CHONDROITIN [Concomitant]
  5. FLAXSEED OIL [Concomitant]
  6. GARLIC [Concomitant]

REACTIONS (3)
  - CHEST DISCOMFORT [None]
  - DYSPNOEA [None]
  - PALPITATIONS [None]
